FAERS Safety Report 8298061-5 (Version None)
Quarter: 2012Q2

REPORT INFORMATION
  Report Type: 
  Country: None (occurrence: None)
  Receive Date: 20120419
  Receipt Date: 20120329
  Transmission Date: 20120825
  Serious: Yes (Death)
  Sender: FDA-Public Use
  Company Number: US-BAXTER-2012BAX001609

PATIENT
  Sex: Male

DRUGS (4)
  1. DIANEAL [Suspect]
     Indication: PERITONEAL DIALYSIS
     Route: 033
     Dates: end: 20120325
  2. DIANEAL LOW CALCIUM W/ DEXTROSE 1.5% [Suspect]
     Indication: PERITONEAL DIALYSIS
     Route: 033
     Dates: end: 20120325
  3. DIANEAL [Suspect]
     Route: 033
     Dates: end: 20120325
  4. DIANEAL [Suspect]
     Route: 033
     Dates: end: 20120325

REACTIONS (2)
  - DIABETIC COMPLICATION [None]
  - ANGIOPATHY [None]
